FAERS Safety Report 10663852 (Version 1)
Quarter: 2014Q4

REPORT INFORMATION
  Report Type: Spontaneous
  Country: BE (occurrence: BE)
  Receive Date: 20141219
  Receipt Date: 20141219
  Transmission Date: 20150529
  Serious: Yes (Other)
  Sender: FDA-Public Use
  Company Number: BE-CIPLA LTD.-2014BE02583

PATIENT

DRUGS (3)
  1. GEMCITABINE [Suspect]
     Active Substance: GEMCITABINE\GEMCITABINE HYDROCHLORIDE
     Indication: PANCREATIC CARCINOMA METASTATIC
     Dosage: 1000 MG/M2, WEEKLY FOR 3 CONSECUTIVE WEEKS
     Route: 042
  2. ERLOTINIB [Suspect]
     Active Substance: ERLOTINIB
     Indication: PANCREATIC CARCINOMA METASTATIC
     Dosage: 100 MG PER DAY
     Route: 048
  3. ERLOTINIB [Suspect]
     Active Substance: ERLOTINIB
     Dosage: 100 MG PER DAY 150 MG PER DAY, INCREASED IN 50 MG INCREMENTS BIWEEKLY
     Route: 048

REACTIONS (1)
  - Respiratory disorder [Unknown]
